FAERS Safety Report 7680359-2 (Version None)
Quarter: 2011Q3

REPORT INFORMATION
  Report Type: 
  Country: None (occurrence: None)
  Receive Date: 20110812
  Receipt Date: 20110804
  Transmission Date: 20111222
  Serious: Yes (Hospitalization)
  Sender: FDA-Public Use
  Company Number: FR-GLAXOSMITHKLINE-B0737098A

PATIENT
  Sex: Female

DRUGS (14)
  1. PENTACARINAT [Concomitant]
     Indication: PNEUMOCYSTIS JIROVECI PNEUMONIA
     Dates: start: 20110701
  2. GENTAMICIN [Concomitant]
     Dosage: 180MG PER DAY
     Dates: start: 20110627, end: 20110630
  3. ROVAMYCINE [Concomitant]
     Dates: start: 20110629
  4. FOLIC ACID [Suspect]
     Indication: PRODUCT USED FOR UNKNOWN INDICATION
     Dosage: 1UNIT PER DAY
     Route: 048
     Dates: start: 20110620, end: 20110701
  5. ONDANSERTRON HYDROCHLORIDE [Concomitant]
     Dates: start: 20110620, end: 20110624
  6. GRANOCYTE [Concomitant]
     Dates: start: 20110601, end: 20110630
  7. CEFTAZIDIME SODIUM [Suspect]
     Indication: PRODUCT USED FOR UNKNOWN INDICATION
     Dosage: 4G PER DAY
     Route: 042
     Dates: start: 20110627, end: 20110701
  8. CLADRIBINE [Suspect]
     Indication: HAIRY CELL LEUKAEMIA
     Dosage: 9MG PER DAY
     Route: 058
     Dates: start: 20110620, end: 20110624
  9. DISULONE [Concomitant]
     Dates: start: 20110623, end: 20110627
  10. RIMIFON [Concomitant]
     Dates: end: 20110702
  11. VALACYCLOVIR HYDROCHLORIDE [Suspect]
     Indication: PROPHYLAXIS
     Dosage: 500MG TWICE PER DAY
     Route: 048
     Dates: start: 20110620, end: 20110702
  12. VIBRAMYCIN [Concomitant]
     Dates: start: 20110620, end: 20110627
  13. ROCEPHIN [Concomitant]
     Dates: start: 20110624, end: 20110627
  14. CIPROFLOXACIN [Concomitant]
     Dates: start: 20110624, end: 20110627

REACTIONS (5)
  - LYMPHOCYTOSIS [None]
  - RASH MACULO-PAPULAR [None]
  - COUGH [None]
  - DYSPNOEA [None]
  - PURPURA [None]
